FAERS Safety Report 7340878-5 (Version None)
Quarter: 2011Q1

REPORT INFORMATION
  Report Type: 
  Country: None (occurrence: None)
  Receive Date: 20110228
  Receipt Date: 20110210
  Transmission Date: 20110831
  Serious: Yes (Hospitalization)
  Sender: FDA-Public Use
  Company Number: AMAG201100025

PATIENT
  Age: 83 Year
  Sex: Male
  Weight: 85.3 kg

DRUGS (3)
  1. LOPRESSOR [Concomitant]
  2. FERAHEME [Suspect]
     Indication: IRON DEFICIENCY ANAEMIA
     Dosage: 510, SINGLE, INTRAVENOUS
     Route: 042
     Dates: start: 20110209, end: 20110209
  3. WELLBUTRIN [Concomitant]

REACTIONS (5)
  - HYPOXIA [None]
  - DYSPNOEA [None]
  - HYPOTENSION [None]
  - IMMEDIATE POST-INJECTION REACTION [None]
  - FLUSHING [None]
